FAERS Safety Report 11130089 (Version 3)
Quarter: 2015Q2

REPORT INFORMATION
  Report Type: Report from Study
  Country: US (occurrence: US)
  Receive Date: 20150521
  Receipt Date: 20150612
  Transmission Date: 20150821
  Serious: Yes (Death)
  Sender: FDA-Public Use
  Company Number: PHEH2015US009793

PATIENT
  Sex: Male
  Weight: 61.22 kg

DRUGS (1)
  1. AFINITOR [Suspect]
     Active Substance: EVEROLIMUS
     Indication: PARAPROTEINAEMIA
     Dosage: 10 MG, QD
     Route: 048

REACTIONS (3)
  - Epistaxis [Unknown]
  - Death [Fatal]
  - Off label use [Unknown]
